FAERS Safety Report 23356452 (Version 1)
Quarter: 2024Q1

REPORT INFORMATION
  Report Type: Report from Study
  Country: CO (occurrence: CO)
  Receive Date: 20240102
  Receipt Date: 20240102
  Transmission Date: 20240410
  Serious: Yes (Hospitalization)
  Sender: FDA-Public Use
  Company Number: CO-ZAMBON-202305042COR

PATIENT
  Age: 62 Year
  Sex: Female
  Weight: 65 kg

DRUGS (7)
  1. XADAGO [Suspect]
     Active Substance: SAFINAMIDE MESYLATE
     Indication: Parkinson^s disease
     Route: 048
     Dates: start: 20230919, end: 20231003
  2. XADAGO [Suspect]
     Active Substance: SAFINAMIDE MESYLATE
     Route: 048
     Dates: start: 20231004, end: 20231123
  3. CARBIDOPA\LEVODOPA [Concomitant]
     Active Substance: CARBIDOPA\LEVODOPA
     Indication: Parkinson^s disease
     Dosage: NOT PROVIDED
  4. MIRTAZAPINE [Concomitant]
     Active Substance: MIRTAZAPINE
     Dosage: NOT PROVIDED
  5. QUETIAPINE [Concomitant]
     Active Substance: QUETIAPINE
     Indication: Schizophrenia
     Dosage: NOT PROVIDED
  6. STALEVO [Concomitant]
     Active Substance: CARBIDOPA\ENTACAPONE\LEVODOPA
     Indication: Parkinson^s disease
     Dosage: NOT PROVIDED
  7. AMANTADINE [Concomitant]
     Active Substance: AMANTADINE
     Indication: Parkinson^s disease
     Dosage: NOT PROVIDED

REACTIONS (4)
  - Suicide attempt [Recovered/Resolved]
  - Suicide attempt [Recovered/Resolved]
  - Urinary tract infection [Recovered/Resolved]
  - Hallucinations, mixed [Recovering/Resolving]

NARRATIVE: CASE EVENT DATE: 20230925
